FAERS Safety Report 21749290 (Version 1)
Quarter: 2022Q4

REPORT INFORMATION
  Report Type: Spontaneous
  Country: US (occurrence: None)
  Receive Date: 20221217
  Receipt Date: 20221217
  Transmission Date: 20230113
  Serious: Yes (Death)
  Sender: FDA-Public Use
  Company Number: None

PATIENT
  Age: 73 Year
  Sex: Male

DRUGS (1)
  1. LENALIDOMIDE [Suspect]
     Active Substance: LENALIDOMIDE
     Indication: Plasma cell myeloma
     Dosage: 2.5MG QD ORAL
     Route: 048
     Dates: start: 20190318, end: 20221130

REACTIONS (4)
  - Brain injury [None]
  - Cerebral ischaemia [None]
  - Hypoxic-ischaemic encephalopathy [None]
  - Brain oedema [None]

NARRATIVE: CASE EVENT DATE: 20221130
